FAERS Safety Report 9414982 (Version 3)
Quarter: 2013Q4

REPORT INFORMATION
  Report Type: Spontaneous
  Country: US (occurrence: US)
  Receive Date: 20130723
  Receipt Date: 20131216
  Transmission Date: 20140711
  Serious: Yes (Other)
  Sender: FDA-Public Use
  Company Number: US-PFIZER INC-2013172506

PATIENT
  Age: 80 Year
  Sex: Female
  Weight: 74.38 kg

DRUGS (20)
  1. LYRICA [Suspect]
     Indication: PAIN IN EXTREMITY
     Dosage: 150 MG, 3X/DAY
     Route: 048
     Dates: end: 201311
  2. LYRICA [Suspect]
     Indication: DIABETIC NEUROPATHY
  3. METFORMIN [Concomitant]
     Indication: DIABETES MELLITUS
     Dosage: 500 MG, 2X/DAY
     Route: 048
  4. ADVAIR DISKUS [Concomitant]
     Dosage: 250-50 MCG (1PUFF INHALATION), 2X/DAY
  5. ADVAIR DISKUS [Concomitant]
     Dosage: 100-50 MCG (1 PUFF INHALATION), 2X/DAY
  6. NASONEX [Concomitant]
     Dosage: 50 UG (2SPRAYS IN EACH NOSTRIL), 1X/DAY
     Route: 045
  7. BETAMETHASONE DIPROPIONATE/CLOTRIMAZOLE [Concomitant]
     Dosage: UNK, 2X/DAY
  8. FENTANYL [Concomitant]
     Dosage: 12 UG (1PATCH), EVERY 72 HOURS
     Route: 062
  9. LISINOPRIL [Concomitant]
     Dosage: 10 MG, 1X/DAY
     Route: 048
  10. HYDROCODONE W/ACETAMINOPHEN [Concomitant]
     Indication: PAIN
     Dosage: 5-500 MG, 1 CAPSULE AS NEEDED EVERY 6 HRS
     Route: 048
  11. ASPIRIN [Concomitant]
     Dosage: 81 MG, 1X/DAY
     Route: 048
  12. HYDROCHLOROTHIAZIDE [Concomitant]
     Dosage: 25 MG, 1X/DAY
     Route: 048
  13. TRIAMCINOLONE ACETONIDE [Concomitant]
     Dosage: UNK, 2X/DAY
  14. CLOBETASOL PROPIONATE [Concomitant]
     Dosage: UNK, 2X/DAY
  15. VOLTAREN [Concomitant]
     Dosage: UNK, (AS DIRECTETD) 3X/DAY
     Route: 062
  16. BABY ASPIRIN [Concomitant]
     Dosage: 81 MG, 1X/DAY
  17. SPIRIVA [Concomitant]
     Indication: DYSPNOEA
     Dosage: UNK
  18. SPIRIVA [Concomitant]
     Indication: LUNG DISORDER
  19. FLUTICASONE [Concomitant]
     Dosage: UNK
     Route: 045
  20. OXYCODONE [Concomitant]
     Indication: PAIN
     Dosage: UNK

REACTIONS (12)
  - Activities of daily living impaired [Unknown]
  - Dyspnoea [Unknown]
  - Pain [Not Recovered/Not Resolved]
  - Fatigue [Unknown]
  - Confusional state [Unknown]
  - Malaise [Unknown]
  - Pain in extremity [Not Recovered/Not Resolved]
  - Hypoaesthesia [Not Recovered/Not Resolved]
  - Neuropathy peripheral [Not Recovered/Not Resolved]
  - Oxygen saturation decreased [Unknown]
  - Hypotension [Unknown]
  - Body mass index increased [Unknown]
